FAERS Safety Report 20501412 (Version 1)
Quarter: 2022Q1

REPORT INFORMATION
  Report Type: Spontaneous
  Country: CN (occurrence: CN)
  Receive Date: 20220222
  Receipt Date: 20220222
  Transmission Date: 20220423
  Serious: Yes (Life-Threatening, Hospitalization)
  Sender: FDA-Public Use
  Company Number: CN-PFIZER INC-202200239186

PATIENT
  Age: 51 Year
  Sex: Female
  Weight: 45.5 kg

DRUGS (1)
  1. SUTENT [Suspect]
     Active Substance: SUNITINIB MALATE
     Indication: Renal cancer
     Dosage: 50 MG, 1X/DAY
     Route: 048
     Dates: start: 20211226, end: 20220123

REACTIONS (5)
  - Hepatic function abnormal [Recovering/Resolving]
  - Myelosuppression [Recovering/Resolving]
  - Cardiac failure [Recovering/Resolving]
  - Renal impairment [Recovering/Resolving]
  - Traumatic lung injury [Recovering/Resolving]

NARRATIVE: CASE EVENT DATE: 20220123
